FAERS Safety Report 16498576 (Version 1)
Quarter: 2019Q2

REPORT INFORMATION
  Report Type: Spontaneous
  Country: ES (occurrence: ES)
  Receive Date: 20190629
  Receipt Date: 20190629
  Transmission Date: 20190711
  Serious: Yes (Other)
  Sender: FDA-Public Use
  Company Number: ES-AUROBINDO-AUR-APL-2019-036438

PATIENT

DRUGS (1)
  1. ERTAPENEM. [Suspect]
     Active Substance: ERTAPENEM SODIUM
     Indication: URINARY TRACT INFECTION
     Dosage: 1 GRAM, DAILY
     Route: 042
     Dates: start: 20190514, end: 20190521

REACTIONS (1)
  - Encephalopathy [Recovered/Resolved]

NARRATIVE: CASE EVENT DATE: 20190518
